FAERS Safety Report 18998550 (Version 1)
Quarter: 2021Q1

REPORT INFORMATION
  Report Type: Spontaneous
  Country: IT (occurrence: IT)
  Receive Date: 20210312
  Receipt Date: 20210312
  Transmission Date: 20210420
  Serious: Yes (Death, Other)
  Sender: FDA-Public Use
  Company Number: IT-AUROBINDO-AUR-APL-2021-009253

PATIENT
  Age: 40 Year
  Sex: Female
  Weight: 52 kg

DRUGS (1)
  1. BUPIVACAINE 5 MG/ML [Suspect]
     Active Substance: BUPIVACAINE
     Indication: SPINAL ANAESTHESIA
     Dosage: 8.5 MILLIGRAM
     Route: 065

REACTIONS (7)
  - Brain oedema [Fatal]
  - Loss of consciousness [Unknown]
  - Headache [Unknown]
  - Brain herniation [Fatal]
  - Subdural haematoma [Fatal]
  - Maternal exposure during delivery [Unknown]
  - Post lumbar puncture syndrome [Unknown]
